FAERS Safety Report 9053282 (Version 2)
Quarter: 2013Q1

REPORT INFORMATION
  Report Type: Report from Study
  Country: US (occurrence: US)
  Receive Date: 20130207
  Receipt Date: 20130307
  Transmission Date: 20140127
  Serious: Yes (Hospitalization, Other)
  Sender: FDA-Public Use
  Company Number: US-ABBOTT-13P-163-1040504-00

PATIENT
  Sex: Female
  Weight: 78.54 kg

DRUGS (18)
  1. HUMIRA [Suspect]
     Indication: PSORIASIS
     Route: 058
     Dates: start: 201204, end: 201209
  2. HUMIRA [Suspect]
     Indication: PSORIASIS
     Route: 058
     Dates: start: 201301
  3. METFORMIN [Concomitant]
     Indication: DIABETES MELLITUS
  4. METFORMIN HCL [Concomitant]
     Indication: DIABETES MELLITUS
     Dosage: 1 TABLET WITH A MEAL TWICE A DAY
     Route: 048
  5. MULTIVITAMINS [Concomitant]
     Indication: PRODUCT USED FOR UNKNOWN INDICATION
     Route: 048
  6. CALCIUM [Concomitant]
     Indication: PRODUCT USED FOR UNKNOWN INDICATION
     Dosage: 1 TABLET AFTER MEALS TWICE A DAY
     Route: 048
  7. ZINC [Concomitant]
     Indication: PRODUCT USED FOR UNKNOWN INDICATION
     Dosage: 1 TABLET WITH A MEAL ONCE A DAY
     Route: 048
  8. ATENOLOL [Concomitant]
     Indication: ESSENTIAL HYPERTENSION
     Route: 048
  9. MICARDIS [Concomitant]
     Indication: ESSENTIAL HYPERTENSION
     Route: 048
  10. SPIRIVA HANDIHALER [Concomitant]
     Indication: CHRONIC OBSTRUCTIVE PULMONARY DISEASE
     Route: 055
  11. VENTOLIN HFA [Concomitant]
     Indication: CHRONIC OBSTRUCTIVE PULMONARY DISEASE
     Dosage: AEROSOL SOLUTION 2 PUFFS AS NEEDED EVERY 4 HOURS
     Route: 055
  12. SIMVASTATIN [Concomitant]
     Indication: HYPERLIPIDAEMIA
     Dosage: 1 TABLET EVERY EVENING ONCE A DAY
     Route: 048
  13. SINGULAIR [Concomitant]
     Indication: SEASONAL ALLERGY
     Dosage: 1 TABLET EVERY EVENING ONCE A DAY
     Route: 048
  14. PLAVIX [Concomitant]
     Indication: CORONARY ARTERY DISEASE
     Route: 048
  15. MUCINEX [Concomitant]
     Indication: RESPIRATORY TRACT CONGESTION
     Dosage: EXTENDED RELEASE 12 HOUR TABLET EVERY 12 HOURS
  16. SYMBICORT [Concomitant]
     Indication: CHRONIC OBSTRUCTIVE PULMONARY DISEASE
     Dosage: AEROSOL 2 PUFFS TWICE A DAY
     Route: 055
  17. OMEPRAZOLE [Concomitant]
     Indication: PRODUCT USED FOR UNKNOWN INDICATION
     Dosage: DELAYED RELEASE
  18. IRON [Concomitant]
     Indication: IRON DEFICIENCY ANAEMIA
     Route: 048

REACTIONS (8)
  - Fatigue [Recovered/Resolved]
  - Aortic disorder [Recovered/Resolved]
  - Dyspnoea [Recovered/Resolved]
  - Cardiac stress test abnormal [Recovered/Resolved]
  - Chest pain [Unknown]
  - Sciatica [Unknown]
  - Trigger finger [Recovered/Resolved]
  - Neuropathy peripheral [Unknown]
